FAERS Safety Report 9528422 (Version 1)
Quarter: 2013Q3

REPORT INFORMATION
  Report Type: Report from Study
  Country: SE (occurrence: SE)
  Receive Date: 20130917
  Receipt Date: 20130917
  Transmission Date: 20140515
  Serious: Yes (Hospitalization)
  Sender: FDA-Public Use
  Company Number: SE-ASTELLAS-2013EU007677

PATIENT
  Sex: Female

DRUGS (5)
  1. BETMIGA [Suspect]
     Indication: HYPERTONIC BLADDER
     Dosage: 50 MG, UID/QD
     Route: 048
     Dates: start: 20130604
  2. BETMIGA [Suspect]
     Indication: POLLAKIURIA
  3. BETMIGA [Suspect]
     Indication: MICTURITION URGENCY
  4. LEVAXIN [Concomitant]
     Dosage: UNK
     Route: 048
  5. VAGIFEM [Concomitant]
     Dosage: UNK
     Route: 065

REACTIONS (2)
  - Cardiac failure [Unknown]
  - Oedema peripheral [Unknown]
